FAERS Safety Report 11021791 (Version 1)
Quarter: 2015Q2

REPORT INFORMATION
  Report Type: Spontaneous
  Country: US (occurrence: US)
  Receive Date: 20150413
  Receipt Date: 20150413
  Transmission Date: 20150821
  Serious: No
  Sender: FDA-Public Use
  Company Number: US-ASTRAZENECA-2015SE31807

PATIENT
  Age: 816 Month
  Sex: Female
  Weight: 53.5 kg

DRUGS (3)
  1. CRESTOR [Suspect]
     Active Substance: ROSUVASTATIN CALCIUM
     Indication: BLOOD CHOLESTEROL ABNORMAL
     Route: 048
     Dates: start: 20150321
  2. VITAMIN D 3 [Concomitant]
     Indication: SUPPLEMENTATION THERAPY
     Route: 048
  3. CRESTOR [Suspect]
     Active Substance: ROSUVASTATIN CALCIUM
     Indication: BLOOD CHOLESTEROL INCREASED
     Route: 048
     Dates: start: 20150321

REACTIONS (3)
  - Muscle spasms [Unknown]
  - Off label use [Not Recovered/Not Resolved]
  - Rosacea [Unknown]

NARRATIVE: CASE EVENT DATE: 201503
